FAERS Safety Report 6975362-1 (Version None)
Quarter: 2010Q3

REPORT INFORMATION
  Report Type: 
  Country: None (occurrence: None)
  Receive Date: 20100910
  Receipt Date: 20090309
  Transmission Date: 20110219
  Serious: No
  Sender: FDA-Public Use
  Company Number: US-WYE-H08528409

PATIENT
  Sex: Male
  Weight: 70.37 kg

DRUGS (4)
  1. PRISTIQ [Suspect]
     Indication: DEPRESSION
     Route: 048
     Dates: start: 20090304
  2. LEXAPRO [Suspect]
     Dates: end: 20090303
  3. LEXAPRO [Suspect]
     Dates: start: 20090304, end: 20090306
  4. TRAZODONE HCL [Concomitant]

REACTIONS (4)
  - ANXIETY [None]
  - FATIGUE [None]
  - INSOMNIA [None]
  - IRRITABILITY [None]
